FAERS Safety Report 22160158 (Version 1)
Quarter: 2023Q1

REPORT INFORMATION
  Report Type: Spontaneous
  Country: EG (occurrence: None)
  Receive Date: 20230330
  Receipt Date: 20230330
  Transmission Date: 20230417
  Serious: Yes (unspecified)
  Sender: FDA-Public Use
  Company Number: None

PATIENT
  Age: 21 Year
  Sex: Male
  Weight: 94 kg

DRUGS (13)
  1. NOLVADEX [Suspect]
     Active Substance: TAMOXIFEN CITRATE
  2. CLOMID [Suspect]
     Active Substance: CLOMIPHENE CITRATE
  3. NOLVADEX [Concomitant]
     Active Substance: TAMOXIFEN CITRATE
  4. URSODIOL [Concomitant]
     Active Substance: URSODIOL
  5. NAC [Concomitant]
  6. DIETARY SUPPLEMENT\HERBALS\MILK THISTLE [Concomitant]
     Active Substance: DIETARY SUPPLEMENT\HERBALS\MILK THISTLE
  7. Isotrentoin [Concomitant]
  8. HERBALS\WITHANIA SOMNIFERA ROOT [Concomitant]
     Active Substance: HERBALS\WITHANIA SOMNIFERA ROOT
  9. OMEGA-3 ACIDS [Concomitant]
     Active Substance: OMEGA-3 FATTY ACIDS
  10. ZINC PICOLINATE [Concomitant]
     Active Substance: ZINC PICOLINATE
  11. MAGNESIUM CITRATE [Concomitant]
     Active Substance: MAGNESIUM CITRATE
  12. PANTOGAR [Concomitant]
     Active Substance: AMINOBENZOIC ACID\CALCIUM PANTOTHENATE\CYSTINE\KERATIN\THIAMINE MONONITRATE
  13. Multi Vitamin(Daily Vits) [Concomitant]

REACTIONS (2)
  - Visual impairment [None]
  - Therapy change [None]

NARRATIVE: CASE EVENT DATE: 20230323
